FAERS Safety Report 9316893 (Version 3)
Quarter: 2013Q3

REPORT INFORMATION
  Report Type: Spontaneous
  Country: JP (occurrence: JP)
  Receive Date: 20130530
  Receipt Date: 20130707
  Transmission Date: 20140515
  Serious: Yes (Life-Threatening, Other)
  Sender: FDA-Public Use
  Company Number: JP-UCBSA-086993

PATIENT
  Age: 90 Year
  Sex: Female

DRUGS (6)
  1. E KEPPRA [Suspect]
     Indication: EPILEPSY
     Route: 048
     Dates: start: 20130314, end: 20130325
  2. DEPAKENE [Suspect]
     Indication: EPILEPSY
     Route: 048
     Dates: start: 20130306, end: 20130322
  3. DIOVAN [Concomitant]
     Indication: BLOOD PRESSURE MANAGEMENT
     Dosage: DAILY DOSE: 40 MG
     Route: 048
     Dates: start: 20130306
  4. FLUITRAN [Concomitant]
     Indication: BLOOD PRESSURE MANAGEMENT
     Dosage: DAILY DOSE: 2 MG
     Route: 048
     Dates: start: 20130306
  5. BIO-THREE [Concomitant]
     Indication: GASTROINTESTINAL DISORDER
     Dosage: DAILY DOSE: 3 DF
     Route: 048
     Dates: start: 20130306
  6. PHENOBAL [Concomitant]
     Indication: EPILEPSY
     Dosage: DAILY DOSE: 60 MG
     Route: 048
     Dates: start: 20130322

REACTIONS (4)
  - Pancytopenia [Recovering/Resolving]
  - Pneumonia [Unknown]
  - Diarrhoea [Unknown]
  - Urinary tract infection [Unknown]
